FAERS Safety Report 6866498-4 (Version None)
Quarter: 2010Q3

REPORT INFORMATION
  Report Type: 
  Country: None (occurrence: None)
  Receive Date: 20100722
  Receipt Date: 20100719
  Transmission Date: 20110219
  Serious: Yes (Other)
  Sender: FDA-Public Use
  Company Number: PHHY2010CY47076

PATIENT
  Age: 40 Year
  Sex: Male

DRUGS (2)
  1. TOBI [Suspect]
     Dosage: UNK
     Dates: start: 20100401, end: 20100428
  2. TOBI [Suspect]
     Dosage: UNK
     Dates: start: 20100601

REACTIONS (3)
  - AMYOTROPHIC LATERAL SCLEROSIS [None]
  - DEAFNESS [None]
  - TINNITUS [None]
